FAERS Safety Report 6734684-X (Version None)
Quarter: 2010Q2

REPORT INFORMATION
  Report Type: 
  Country: None (occurrence: None)
  Receive Date: 20100519
  Receipt Date: 20100519
  Transmission Date: 20101027
  Serious: Yes (Hospitalization)
  Sender: FDA-Public Use
  Company Number: None

PATIENT
  Age: 54 Year
  Sex: Male

DRUGS (2)
  1. CEFUROXIME [Suspect]
     Indication: SINUSITIS
     Dosage: 250 MG BID PO
     Route: 048
     Dates: start: 20100211, end: 20100226
  2. DOXYCYCLINE [Suspect]
     Indication: SINUSITIS
     Dosage: 100 MG BID PO
     Route: 048
     Dates: start: 20100113, end: 20100123

REACTIONS (5)
  - ABDOMINAL PAIN LOWER [None]
  - CLOSTRIDIAL INFECTION [None]
  - DIARRHOEA [None]
  - NAUSEA [None]
  - VOMITING [None]
